FAERS Safety Report 8811343 (Version 2)
Quarter: 2013Q1

REPORT INFORMATION
  Report Type: Report from Study
  Country: FR (occurrence: FR)
  Receive Date: 20120927
  Receipt Date: 20130308
  Transmission Date: 20140127
  Serious: Yes (Hospitalization)
  Sender: FDA-Public Use
  Company Number: FR-PFIZER INC-2012234636

PATIENT
  Age: 51 Year
  Sex: Male
  Weight: 115 kg

DRUGS (14)
  1. GENOTROPIN [Suspect]
     Indication: GROWTH HORMONE DEFICIENCY
     Dosage: 0.3 MG, 1X/DAY (7 INJECTIONS WEEKS)
     Route: 058
     Dates: start: 20050524
  2. ANDROTARDYL [Concomitant]
     Indication: BLOOD LUTEINISING HORMONE DECREASED
     Dosage: UNK
     Dates: start: 20050411
  3. ANDROTARDYL [Concomitant]
     Indication: BLOOD FOLLICLE STIMULATING HORMONE DECREASED
  4. ANDROTARDYL [Concomitant]
     Indication: HYPOGONADISM MALE
  5. BROMAZEPAM [Concomitant]
     Indication: ANXIETY
     Dosage: UNK
     Dates: start: 20050411
  6. BROMAZEPAM [Concomitant]
     Indication: DEPRESSION
  7. CALCIUM [Concomitant]
     Indication: CALCIUM DEFICIENCY
     Dosage: UNK
     Dates: start: 20050411, end: 2006
  8. METHOTREXATE [Concomitant]
     Indication: PSORIASIS
     Dosage: UNK
     Dates: start: 20050411
  9. MOPRAL [Concomitant]
     Indication: ULCER
     Dosage: UNK
     Dates: start: 20050411
  10. SERESTA [Concomitant]
     Indication: ANXIETY
     Dosage: UNK
     Dates: start: 20050411
  11. SERESTA [Concomitant]
     Indication: DEPRESSION
  12. SPECIAFOLDINE [Concomitant]
     Indication: FOLATE DEFICIENCY
     Dosage: UNK
     Dates: start: 20050411, end: 2006
  13. OMEPRAZOLE [Concomitant]
     Indication: GASTRIC ULCER
     Dosage: UNK
     Dates: start: 20050411
  14. FOSAMAX [Concomitant]
     Indication: OSTEOPOROSIS
     Dosage: UNK
     Dates: start: 20050411

REACTIONS (1)
  - Weight abnormal [Recovered/Resolved]
